FAERS Safety Report 6550934-7 (Version None)
Quarter: 2010Q1

REPORT INFORMATION
  Report Type: 
  Country: None (occurrence: None)
  Receive Date: 20100125
  Receipt Date: 20100113
  Transmission Date: 20100710
  Serious: Yes (Death, Hospitalization)
  Sender: FDA-Public Use
  Company Number: US-PFIZER INC-2010005070

PATIENT
  Sex: Female

DRUGS (2)
  1. SUTENT [Suspect]
     Indication: METASTATIC RENAL CELL CARCINOMA
     Dosage: 50 MG, UNK
  2. SUTENT [Suspect]
     Indication: LUNG NEOPLASM MALIGNANT

REACTIONS (4)
  - ASTHENIA [None]
  - DEATH [None]
  - DECREASED APPETITE [None]
  - MENTAL STATUS CHANGES [None]
